FAERS Safety Report 5108379-2 (Version None)
Quarter: 2006Q3

REPORT INFORMATION
  Report Type: 
  Country: None (occurrence: None)
  Receive Date: 20060731
  Receipt Date: 20060525
  Transmission Date: 20061208
  Serious: No
  Sender: FDA-Public Use
  Company Number: 2006PV014488

PATIENT
  Age: 64 Year
  Sex: Male
  Weight: 63.5036 kg

DRUGS (3)
  1. BYETTA [Suspect]
     Indication: DIABETES MELLITUS
     Dosage: 5 MCG; BID; SC
     Route: 058
     Dates: start: 20050901, end: 20050901
  2. GLUCOPHAGE [Concomitant]
  3. GLUCOTROL [Concomitant]

REACTIONS (2)
  - BALANCE DISORDER [None]
  - HEAD INJURY [None]
